FAERS Safety Report 6386735-2 (Version None)
Quarter: 2009Q4

REPORT INFORMATION
  Report Type: 
  Country: None (occurrence: None)
  Receive Date: 20091002
  Receipt Date: 20090923
  Transmission Date: 20100525
  Serious: Yes (Death, Hospitalization)
  Sender: FDA-Public Use
  Company Number: A0737549A

PATIENT
  Age: 66 Year
  Sex: Male

DRUGS (4)
  1. AVANDIA [Suspect]
     Dosage: 4MG UNKNOWN
     Route: 048
     Dates: start: 20010212, end: 20051122
  2. NEURONTIN [Concomitant]
  3. NOVOLIN R [Concomitant]
  4. HYDRALAZINE [Concomitant]

REACTIONS (8)
  - ACUTE MYOCARDIAL INFARCTION [None]
  - AORTIC VALVE SCLEROSIS [None]
  - CARDIAC FAILURE CONGESTIVE [None]
  - CORONARY ARTERY DISEASE [None]
  - HYPERTENSION [None]
  - LEFT ATRIAL DILATATION [None]
  - LEFT VENTRICULAR HYPERTROPHY [None]
  - MITRAL VALVE INCOMPETENCE [None]
